FAERS Safety Report 8794762 (Version 1)
Quarter: 2012Q4

REPORT INFORMATION
  Report Type: 
  Country: GB (occurrence: GB)
  Receive Date: 20120917
  Receipt Date: 20120917
  Transmission Date: 20130627
  Serious: Yes (Other)
  Sender: FDA-Public Use
  Company Number: GB-TEVA-358107ISR

PATIENT
  Sex: Male

DRUGS (2)
  1. BISOPROLOL [Suspect]
  2. ATENOLOL [Suspect]

REACTIONS (3)
  - Psychotic disorder [Unknown]
  - Hallucination [Unknown]
  - Nightmare [Unknown]
